FAERS Safety Report 17632133 (Version 3)
Quarter: 2021Q4

REPORT INFORMATION
  Report Type: Report from Study
  Country: US (occurrence: US)
  Receive Date: 20200406
  Receipt Date: 20211221
  Transmission Date: 20220304
  Serious: Yes (Other)
  Sender: FDA-Public Use
  Company Number: US-PFIZER INC-2020129953

PATIENT
  Age: 67 Year
  Sex: Female
  Weight: 50.3 kg

DRUGS (1)
  1. PALBOCICLIB [Suspect]
     Active Substance: PALBOCICLIB
     Indication: Metastatic uterine cancer
     Dosage: 125 MG, CYCLIC (DAILY ON DAYS 1-21 OF A 28-DAY CYCLE)
     Route: 048
     Dates: start: 20180920

REACTIONS (2)
  - Blood alkaline phosphatase increased [Unknown]
  - Lymphocyte count decreased [Recovered/Resolved]

NARRATIVE: CASE EVENT DATE: 20181101
